FAERS Safety Report 4830344-0 (Version None)
Quarter: 2005Q4

REPORT INFORMATION
  Report Type: 
  Country: None (occurrence: None)
  Receive Date: 20051114
  Receipt Date: 20051101
  Transmission Date: 20060501
  Serious: Yes (Hospitalization, Other)
  Sender: FDA-Public Use
  Company Number: USA0508106100

PATIENT
  Age: 83 Year
  Sex: Female
  Weight: 37 kg

DRUGS (6)
  1. FORTEO [Suspect]
     Indication: OSTEOPOROSIS
     Dosage: 20 UG DAY
     Dates: start: 20050815, end: 20050815
  2. LISINOPRIL [Concomitant]
  3. LOPRESSOR [Concomitant]
  4. HYDROCHLOROTHIAZIDE [Concomitant]
  5. ACIPHEX [Concomitant]
  6. XANAX [Concomitant]

REACTIONS (1)
  - EMBOLIC STROKE [None]
